FAERS Safety Report 18816503 (Version 1)
Quarter: 2021Q1

REPORT INFORMATION
  Report Type: Spontaneous
  Country: US (occurrence: US)
  Receive Date: 20210201
  Receipt Date: 20210201
  Transmission Date: 20210419
  Serious: Yes (Disabling)
  Sender: FDA-Public Use
  Company Number: None

PATIENT
  Age: 28 Year
  Sex: Female
  Weight: 54 kg

DRUGS (4)
  1. VRAYLAR [Suspect]
     Active Substance: CARIPRAZINE
  2. ABILIFY [Concomitant]
     Active Substance: ARIPIPRAZOLE
  3. COGENTIN (BENZTROPINE MESYLATE) [Concomitant]
  4. ARIPIPRAZOLE. [Suspect]
     Active Substance: ARIPIPRAZOLE
     Indication: SCHIZOPHRENIA
     Dosage: ?          QUANTITY:1 TABLET(S);?
     Route: 048

REACTIONS (4)
  - Headache [None]
  - Visual impairment [None]
  - Nystagmus [None]
  - Dizziness [None]

NARRATIVE: CASE EVENT DATE: 20180101
